FAERS Safety Report 6167356-3 (Version None)
Quarter: 2009Q2

REPORT INFORMATION
  Report Type: 
  Country: None (occurrence: None)
  Receive Date: 20090424
  Receipt Date: 20090317
  Transmission Date: 20091009
  Serious: Yes (Life-Threatening)
  Sender: FDA-Public Use
  Company Number: JP-JNJFOC-20060801543

PATIENT
  Sex: Male

DRUGS (7)
  1. FINIBAX [Suspect]
     Route: 041
     Dates: start: 20060713, end: 20060718
  2. FINIBAX [Suspect]
     Indication: PNEUMONIA
     Route: 041
     Dates: start: 20060713, end: 20060718
  3. ZYVOX [Suspect]
     Indication: PNEUMONIA
     Route: 041
     Dates: start: 20060713, end: 20060718
  4. MICAFUNGIN [Suspect]
     Indication: DRUG USE FOR UNKNOWN INDICATION
  5. TEICOPLANIN [Suspect]
     Indication: DRUG USE FOR UNKNOWN INDICATION
  6. GABEXATE MESILATE [Suspect]
     Indication: DRUG USE FOR UNKNOWN INDICATION
  7. VENOGLOBULIN [Suspect]
     Indication: DRUG USE FOR UNKNOWN INDICATION
     Route: 065

REACTIONS (7)
  - AGRANULOCYTOSIS [None]
  - CANDIDIASIS [None]
  - CHILLS [None]
  - ERYTHEMA [None]
  - PYREXIA [None]
  - RESPIRATORY FAILURE [None]
  - SHOCK [None]
